FAERS Safety Report 7623442-X (Version None)
Quarter: 2011Q3

REPORT INFORMATION
  Report Type: 
  Country: None (occurrence: None)
  Receive Date: 20110720
  Receipt Date: 20110706
  Transmission Date: 20111222
  Serious: Yes (Hospitalization)
  Sender: FDA-Public Use
  Company Number: US-AMGEN-USASP2011034522

PATIENT
  Age: 71 Year
  Sex: Male

DRUGS (1)
  1. ENBREL [Suspect]
     Indication: RHEUMATOID ARTHRITIS
     Dosage: 50 MG, QWK
     Dates: start: 20110307

REACTIONS (5)
  - SYNCOPE [None]
  - CARDIAC ARREST [None]
  - HAEMORRHAGE [None]
  - CORONARY ARTERY BYPASS [None]
  - CATHETERISATION CARDIAC [None]
